FAERS Safety Report 6339851-5 (Version None)
Quarter: 2009Q3

REPORT INFORMATION
  Report Type: 
  Country: None (occurrence: None)
  Receive Date: 20090903
  Receipt Date: 20090824
  Transmission Date: 20100115
  Serious: Yes (Hospitalization, Other)
  Sender: FDA-Public Use
  Company Number: US-BAXTER-2009BH005090

PATIENT
  Age: 54 Year
  Sex: Male

DRUGS (9)
  1. HEPARIN SODIUM INJECTION [Suspect]
     Indication: CRANIECTOMY
     Route: 058
     Dates: start: 20070908, end: 20070910
  2. HEPARIN SODIUM INJECTION [Suspect]
     Indication: SURGERY
     Route: 058
     Dates: start: 20070908, end: 20070910
  3. HEPARIN SODIUM INJECTION [Suspect]
     Indication: METASTASIS
     Route: 058
     Dates: start: 20070908, end: 20070910
  4. HEPARIN SODIUM INJECTION [Suspect]
     Route: 042
     Dates: start: 20070908, end: 20070910
  5. HEPARIN SODIUM INJECTION [Suspect]
     Route: 042
     Dates: start: 20070908, end: 20070910
  6. HEPARIN SODIUM INJECTION [Suspect]
     Route: 042
     Dates: start: 20070908, end: 20070910
  7. PREGABALIN [Concomitant]
     Indication: DRUG USE FOR UNKNOWN INDICATION
     Route: 065
  8. PREGABALIN [Concomitant]
     Route: 065
  9. MULTI-VITAMINS [Concomitant]
     Indication: DRUG USE FOR UNKNOWN INDICATION
     Route: 065

REACTIONS (6)
  - ANXIETY [None]
  - COAGULATION TIME ABNORMAL [None]
  - HEPARIN-INDUCED THROMBOCYTOPENIA [None]
  - OEDEMA PERIPHERAL [None]
  - STRESS [None]
  - THROMBOSIS [None]
